FAERS Safety Report 7874212-9 (Version None)
Quarter: 2011Q4

REPORT INFORMATION
  Report Type: 
  Country: None (occurrence: None)
  Receive Date: 20111017
  Receipt Date: 20101201
  Transmission Date: 20120403
  Serious: Yes (Hospitalization)
  Sender: FDA-Public Use
  Company Number: 2010S10003970(0)

PATIENT
  Age: 24 Year
  Sex: Male

DRUGS (1)
  1. DARVOCET-N 100 [Suspect]
     Indication: TOOTHACHE
     Dosage: (100 MG, 1 IN 8 HR), ORAL
     Route: 048
     Dates: start: 20030217, end: 20030303

REACTIONS (4)
  - BRADYCARDIA [None]
  - MYOCARDIAL INFARCTION [None]
  - SUPRAVENTRICULAR TACHYCARDIA [None]
  - ATRIAL FIBRILLATION [None]
